FAERS Safety Report 9980726 (Version 1)
Quarter: 2014Q1

REPORT INFORMATION
  Report Type: Spontaneous
  Country: FR (occurrence: FR)
  Receive Date: 20140307
  Receipt Date: 20140307
  Transmission Date: 20141002
  Serious: Yes (Hospitalization)
  Sender: FDA-Public Use
  Company Number: FR-RANBAXY-2014US-78717

PATIENT
  Age: 65 Year
  Sex: Male

DRUGS (16)
  1. PARACETAMOL [Suspect]
     Indication: POSTOPERATIVE ANALGESIA
     Dosage: 1 G, QID
     Route: 048
     Dates: start: 20130924, end: 20130926
  2. ONDANSETRON [Suspect]
     Indication: PROCEDURAL VOMITING
     Dosage: 4 MG, QD
     Route: 042
     Dates: start: 20130924, end: 20130924
  3. EUPANTOL [Suspect]
     Indication: PROPHYLAXIS AGAINST GASTROINTESTINAL ULCER
     Dosage: 20 MG, QD
     Route: 048
     Dates: start: 20130925, end: 20130929
  4. MORPHINE [Suspect]
     Indication: POSTOPERATIVE ANALGESIA
     Dosage: 10 MG, QD
     Route: 042
     Dates: start: 20130924, end: 20130925
  5. XARELTO [Suspect]
     Indication: PRODUCT USED FOR UNKNOWN INDICATION
     Dosage: 10 MG, QD
     Route: 048
     Dates: start: 20130925, end: 20131029
  6. DROLEPTAN [Suspect]
     Indication: PROCEDURAL VOMITING
     Dosage: 1 MG, QD
     Route: 042
     Dates: start: 20130924, end: 20130926
  7. PROFENID [Suspect]
     Indication: PRODUCT USED FOR UNKNOWN INDICATION
     Dosage: 50 MG, QID
     Route: 042
     Dates: start: 20130924, end: 20130926
  8. CHLORHYDRATE DE NEFOPAM [Suspect]
     Indication: POSTOPERATIVE ANALGESIA
     Dosage: 5 MG, Q1H
     Route: 042
     Dates: start: 20130924, end: 20130926
  9. DEXAMETHASON [Suspect]
     Indication: PROCEDURAL VOMITING
     Dosage: 4 MG, QD
     Route: 042
     Dates: start: 20130924, end: 20130924
  10. EXACYL [Suspect]
     Indication: HAEMORRHAGE
     Dosage: 500 MG, BID
     Route: 042
     Dates: start: 20130924, end: 20130924
  11. HYPNOVEL [Suspect]
     Indication: ANAESTHESIA
     Dosage: UNK
     Route: 042
     Dates: start: 20130924, end: 20130924
  12. SUFENTA [Suspect]
     Indication: ANAESTHESIA
     Dosage: UNK
     Route: 042
     Dates: start: 20130924, end: 20130924
  13. DIPRIVAN [Suspect]
     Indication: ANAESTHESIA
     Dosage: UNK
     Route: 042
     Dates: start: 20130924, end: 20130924
  14. NIMBEX [Suspect]
     Indication: ANAESTHESIA
     Dosage: UNK
     Route: 042
     Dates: start: 20130924, end: 20130924
  15. KETAMIN [Suspect]
     Indication: ANAESTHESIA
     Dosage: UNK
     Route: 042
     Dates: start: 20130924, end: 20130924
  16. TRIATEC [Concomitant]
     Indication: PRODUCT USED FOR UNKNOWN INDICATION
     Dosage: UNK
     Route: 065

REACTIONS (1)
  - Mania [Recovered/Resolved]
